FAERS Safety Report 11069125 (Version 2)
Quarter: 2015Q2

REPORT INFORMATION
  Report Type: Other
  Country: US (occurrence: US)
  Receive Date: 20150427
  Receipt Date: 20150528
  Transmission Date: 20150821
  Serious: Yes (Death, Life-Threatening, Hospitalization, Other)
  Sender: FDA-Public Use
  Company Number: US-ACORDA-ACO_111076_2015

PATIENT
  Age: 49 Year
  Sex: Male
  Weight: 102.4 kg

DRUGS (3)
  1. AMPYRA [Suspect]
     Active Substance: DALFAMPRIDINE
     Indication: GAIT DISTURBANCE
     Dosage: 10 MG, Q 12 HRS
     Route: 048
  2. OTHER THERAPEUTIC PRODUCTS [Concomitant]
     Active Substance: UNSPECIFIED INGREDIENT
     Indication: PRODUCT USED FOR UNKNOWN INDICATION
     Route: 065
  3. REBIF [Concomitant]
     Active Substance: INTERFERON BETA-1A
     Indication: PRODUCT USED FOR UNKNOWN INDICATION
     Dosage: 1 DF, 3X/WK
     Route: 065

REACTIONS (14)
  - Dysstasia [Unknown]
  - Drug ineffective [Unknown]
  - Pneumonia [Fatal]
  - Wheelchair user [Unknown]
  - Renal disorder [Fatal]
  - Urinary tract infection [Unknown]
  - Musculoskeletal stiffness [Unknown]
  - Loss of control of legs [Unknown]
  - Cough [Unknown]
  - Therapy cessation [Unknown]
  - Choking [Unknown]
  - Cardio-respiratory arrest [Unknown]
  - Asthenia [Unknown]
  - Productive cough [Unknown]

NARRATIVE: CASE EVENT DATE: 2014
